FAERS Safety Report 25216427 (Version 2)
Quarter: 2025Q2

REPORT INFORMATION
  Report Type: Report from Study
  Country: CN (occurrence: CN)
  Receive Date: 20250418
  Receipt Date: 20250512
  Transmission Date: 20250716
  Serious: No
  Sender: ROCHE
  Company Number: CN-ROCHE-10000170463

PATIENT
  Age: 70 Year
  Sex: Male
  Weight: 69 kg

DRUGS (81)
  1. POLATUZUMAB VEDOTIN [Suspect]
     Active Substance: POLATUZUMAB VEDOTIN
     Indication: Diffuse large B-cell lymphoma
     Route: 042
     Dates: start: 20240513, end: 20240513
  2. POLATUZUMAB VEDOTIN [Suspect]
     Active Substance: POLATUZUMAB VEDOTIN
     Route: 042
  3. POLATUZUMAB VEDOTIN [Suspect]
     Active Substance: POLATUZUMAB VEDOTIN
     Route: 042
  4. POLATUZUMAB VEDOTIN [Suspect]
     Active Substance: POLATUZUMAB VEDOTIN
     Route: 042
  5. BENDAMUSTINE [Suspect]
     Active Substance: BENDAMUSTINE
     Indication: Diffuse large B-cell lymphoma
     Route: 042
     Dates: start: 20240515, end: 20240517
  6. BENDAMUSTINE [Suspect]
     Active Substance: BENDAMUSTINE
     Route: 042
  7. BENDAMUSTINE [Suspect]
     Active Substance: BENDAMUSTINE
     Route: 042
  8. BENDAMUSTINE [Suspect]
     Active Substance: BENDAMUSTINE
     Route: 042
  9. RITUXIMAB [Suspect]
     Active Substance: RITUXIMAB
     Indication: Diffuse large B-cell lymphoma
     Route: 042
     Dates: start: 20240514, end: 20240514
  10. RITUXIMAB [Suspect]
     Active Substance: RITUXIMAB
     Route: 042
  11. RITUXIMAB [Suspect]
     Active Substance: RITUXIMAB
     Route: 042
  12. RITUXIMAB [Suspect]
     Active Substance: RITUXIMAB
     Route: 042
  13. RITUXIMAB [Suspect]
     Active Substance: RITUXIMAB
     Route: 042
  14. RITUXIMAB [Suspect]
     Active Substance: RITUXIMAB
     Route: 042
  15. RITUXIMAB [Suspect]
     Active Substance: RITUXIMAB
     Route: 042
  16. Calcium carbonate D3 tablets [Concomitant]
     Route: 048
     Dates: start: 20241206
  17. Calcium gluconate sodium chloride injection [Concomitant]
     Route: 042
     Dates: start: 20241129, end: 20241129
  18. Calcium gluconate sodium chloride injection [Concomitant]
     Route: 042
     Dates: start: 20241126, end: 20241126
  19. Calcium gluconate sodium chloride injection [Concomitant]
     Route: 042
     Dates: start: 20241127, end: 20241127
  20. Moxifloxacin hydrochloride sodium chloride in [Concomitant]
     Route: 042
     Dates: start: 20241114, end: 20241126
  21. Recombinant human thrombopoietin injection [Concomitant]
     Dosage: DRUG DOSE FIRST ADMINISTERED IS 15000 OTHER
     Route: 058
     Dates: start: 20241114
  22. Recombinant human thrombopoietin injection [Concomitant]
     Dosage: DRUG DOSE FIRST ADMINISTERED IS 15000 OTHER
     Route: 058
     Dates: start: 20240730, end: 20240806
  23. Recombinant human thrombopoietin injection [Concomitant]
     Dosage: DRUG DOSE FIRST ADMINISTERED IS 15000 OTHER
     Route: 058
     Dates: start: 20240611, end: 20240619
  24. Recombinant human thrombopoietin injection [Concomitant]
     Dosage: DRUG DOSE FIRST ADMINISTERED IS 15000 OTHER
     Route: 058
     Dates: start: 20240507, end: 20240507
  25. Recombinant human thrombopoietin injection [Concomitant]
     Dosage: DRUG DOSE FIRST ADMINISTERED IS 15000 OTHER
     Route: 058
     Dates: start: 20240910, end: 20240917
  26. Recombinant human thrombopoietin injection [Concomitant]
     Dosage: DRUG DOSE FIRST ADMINISTERED IS 15000 OTHER
     Route: 058
     Dates: start: 20241009, end: 20241014
  27. Recombinant human thrombopoietin injection [Concomitant]
     Dosage: DRUG DOSE FIRST ADMINISTERED IS 15000 OTHER
     Route: 058
     Dates: start: 20241114, end: 20241206
  28. DIPHENHYDRAMINE HYDROCHLORIDE [Concomitant]
     Active Substance: DIPHENHYDRAMINE HYDROCHLORIDE
     Route: 042
     Dates: start: 20241015, end: 20241015
  29. DIPHENHYDRAMINE HYDROCHLORIDE [Concomitant]
     Active Substance: DIPHENHYDRAMINE HYDROCHLORIDE
     Route: 042
     Dates: start: 20241014, end: 20241014
  30. DIPHENHYDRAMINE HYDROCHLORIDE [Concomitant]
     Active Substance: DIPHENHYDRAMINE HYDROCHLORIDE
     Route: 030
     Dates: start: 20240704, end: 20240704
  31. DIPHENHYDRAMINE HYDROCHLORIDE [Concomitant]
     Active Substance: DIPHENHYDRAMINE HYDROCHLORIDE
     Route: 030
     Dates: start: 20240514, end: 20240514
  32. DIPHENHYDRAMINE HYDROCHLORIDE [Concomitant]
     Active Substance: DIPHENHYDRAMINE HYDROCHLORIDE
     Route: 042
     Dates: start: 20240605, end: 20240605
  33. DIPHENHYDRAMINE HYDROCHLORIDE [Concomitant]
     Active Substance: DIPHENHYDRAMINE HYDROCHLORIDE
     Route: 042
     Dates: start: 20240606, end: 20240606
  34. DIPHENHYDRAMINE HYDROCHLORIDE [Concomitant]
     Active Substance: DIPHENHYDRAMINE HYDROCHLORIDE
     Route: 030
     Dates: start: 20240703, end: 20240703
  35. DIPHENHYDRAMINE HYDROCHLORIDE [Concomitant]
     Active Substance: DIPHENHYDRAMINE HYDROCHLORIDE
     Route: 030
     Dates: start: 20240804, end: 20240804
  36. DIPHENHYDRAMINE HYDROCHLORIDE [Concomitant]
     Active Substance: DIPHENHYDRAMINE HYDROCHLORIDE
     Route: 030
     Dates: start: 20240513, end: 20240513
  37. DIPHENHYDRAMINE HYDROCHLORIDE [Concomitant]
     Active Substance: DIPHENHYDRAMINE HYDROCHLORIDE
     Route: 030
     Dates: start: 20241014, end: 20241014
  38. DEXAMETHASONE SODIUM PHOSPHATE [Concomitant]
     Active Substance: DEXAMETHASONE SODIUM PHOSPHATE
     Route: 042
     Dates: start: 20241220, end: 20241224
  39. DEXAMETHASONE SODIUM PHOSPHATE [Concomitant]
     Active Substance: DEXAMETHASONE SODIUM PHOSPHATE
     Route: 042
     Dates: start: 20241015, end: 20241015
  40. DEXAMETHASONE SODIUM PHOSPHATE [Concomitant]
     Active Substance: DEXAMETHASONE SODIUM PHOSPHATE
     Route: 042
     Dates: start: 20240515, end: 20240518
  41. DEXAMETHASONE SODIUM PHOSPHATE [Concomitant]
     Active Substance: DEXAMETHASONE SODIUM PHOSPHATE
     Route: 042
     Dates: start: 20240704, end: 20240704
  42. DEXAMETHASONE SODIUM PHOSPHATE [Concomitant]
     Active Substance: DEXAMETHASONE SODIUM PHOSPHATE
     Route: 042
     Dates: start: 20240514, end: 20240514
  43. DEXAMETHASONE SODIUM PHOSPHATE [Concomitant]
     Active Substance: DEXAMETHASONE SODIUM PHOSPHATE
     Route: 042
     Dates: start: 20240513, end: 20240513
  44. DEXAMETHASONE SODIUM PHOSPHATE [Concomitant]
     Active Substance: DEXAMETHASONE SODIUM PHOSPHATE
     Route: 042
     Dates: start: 20240605, end: 20240605
  45. DEXAMETHASONE SODIUM PHOSPHATE [Concomitant]
     Active Substance: DEXAMETHASONE SODIUM PHOSPHATE
     Route: 042
     Dates: start: 20240606, end: 20240606
  46. DEXAMETHASONE SODIUM PHOSPHATE [Concomitant]
     Active Substance: DEXAMETHASONE SODIUM PHOSPHATE
     Route: 042
     Dates: start: 20240703, end: 20240703
  47. Glutathione for injection [Concomitant]
     Route: 030
     Dates: start: 20241129, end: 20241201
  48. Potassium chloride sustained-release tablets [Concomitant]
     Route: 048
     Dates: start: 20241227, end: 20241227
  49. Potassium chloride sustained-release tablets [Concomitant]
     Route: 048
     Dates: start: 20241228, end: 20241228
  50. Potassium chloride sustained-release tablets [Concomitant]
     Route: 048
     Dates: start: 20241229, end: 20241229
  51. Potassium chloride sustained-release tablets [Concomitant]
     Route: 048
     Dates: start: 20241229, end: 20241229
  52. Potassium chloride sustained-release tablets [Concomitant]
     Route: 048
     Dates: start: 20241230, end: 20241230
  53. Potassium chloride sustained-release tablets [Concomitant]
     Route: 048
     Dates: start: 20241130, end: 20241205
  54. Omeprazole sodium for injection [Concomitant]
     Route: 042
     Dates: start: 20241220, end: 20241230
  55. NIFEDIPINE SUSTAINED RELEASE TABLETS (II) [Concomitant]
     Route: 048
     Dates: start: 20241230, end: 20241230
  56. ASCORBIC ACID [Concomitant]
     Active Substance: ASCORBIC ACID
     Route: 042
     Dates: start: 20240704, end: 20240704
  57. ASCORBIC ACID [Concomitant]
     Active Substance: ASCORBIC ACID
     Route: 042
     Dates: start: 20241221, end: 20241221
  58. ASCORBIC ACID [Concomitant]
     Active Substance: ASCORBIC ACID
     Route: 042
     Dates: start: 20240513, end: 20240513
  59. ASCORBIC ACID [Concomitant]
     Active Substance: ASCORBIC ACID
     Route: 042
     Dates: start: 20240604, end: 20240606
  60. ASCORBIC ACID [Concomitant]
     Active Substance: ASCORBIC ACID
     Route: 042
     Dates: start: 20240702, end: 20240702
  61. ASCORBIC ACID [Concomitant]
     Active Substance: ASCORBIC ACID
     Route: 042
     Dates: start: 20240702, end: 20240704
  62. ASCORBIC ACID [Concomitant]
     Active Substance: ASCORBIC ACID
     Route: 042
     Dates: start: 20240507, end: 20240508
  63. ASCORBIC ACID [Concomitant]
     Active Substance: ASCORBIC ACID
     Route: 042
     Dates: start: 20240804, end: 20240804
  64. Diclofenac Sodium and Codeine Phosphate Tablets [Concomitant]
     Route: 048
     Dates: start: 20240509, end: 20240522
  65. ondansetron hydrochloride injection [Concomitant]
     Route: 042
     Dates: start: 20240515, end: 20240517
  66. Esomeprazole magnesium enteric capsule [Concomitant]
     Route: 048
     Dates: start: 20241014, end: 20241018
  67. Esomeprazole magnesium enteric capsule [Concomitant]
     Route: 048
     Dates: start: 20240605, end: 20240618
  68. Esomeprazole magnesium enteric capsule [Concomitant]
     Route: 048
     Dates: start: 20240703, end: 20240712
  69. Esomeprazole magnesium enteric capsule [Concomitant]
     Route: 048
     Dates: start: 20240515, end: 20240522
  70. Esomeprazole magnesium enteric capsule [Concomitant]
     Route: 048
     Dates: start: 20240905, end: 20240910
  71. Esomeprazole magnesium enteric capsule [Concomitant]
     Route: 048
     Dates: start: 20240804, end: 20240809
  72. Esomeprazole magnesium enteric capsule [Concomitant]
     Route: 048
     Dates: start: 20241014, end: 20241018
  73. Vitamin B6 inj [Concomitant]
     Route: 042
     Dates: start: 20240730, end: 20240804
  74. Vitamin B6 inj [Concomitant]
     Route: 042
     Dates: start: 20240604, end: 20240611
  75. Vitamin B6 inj [Concomitant]
     Route: 042
     Dates: start: 20241009, end: 20241018
  76. PALONOSETRON HYDROCHLORIDE [Concomitant]
     Active Substance: PALONOSETRON HYDROCHLORIDE
     Route: 042
     Dates: start: 20240607, end: 20240609
  77. Granisetron injection [Concomitant]
     Route: 042
     Dates: start: 20240807, end: 20240808
  78. Granisetron injection [Concomitant]
     Route: 042
     Dates: start: 20240705, end: 20240707
  79. DEXAMETHASONE [Concomitant]
     Active Substance: DEXAMETHASONE
     Route: 042
     Dates: start: 20240804, end: 20240804
  80. DEXAMETHASONE [Concomitant]
     Active Substance: DEXAMETHASONE
     Route: 042
     Dates: start: 20240806, end: 20240808
  81. Dolasetron mesylate inj [Concomitant]
     Route: 042
     Dates: start: 20241016, end: 20241018

REACTIONS (6)
  - Malnutrition [Not Recovered/Not Resolved]
  - Blood pressure increased [Recovered/Resolved]
  - Platelet count decreased [Not Recovered/Not Resolved]
  - Hyponatraemia [Not Recovered/Not Resolved]
  - Hypokalaemia [Not Recovered/Not Resolved]
  - Leukopenia [Recovered/Resolved]

NARRATIVE: CASE EVENT DATE: 20240522
